FAERS Safety Report 18818667 (Version 1)
Quarter: 2021Q1

REPORT INFORMATION
  Report Type: Spontaneous
  Country: ES (occurrence: ES)
  Receive Date: 20210201
  Receipt Date: 20210201
  Transmission Date: 20210419
  Serious: Yes (Other)
  Sender: FDA-Public Use
  Company Number: ES-MYLANLABS-2021M1005606

PATIENT
  Age: 61 Year
  Sex: Male

DRUGS (4)
  1. LEVETIRACETAM. [Suspect]
     Active Substance: LEVETIRACETAM
     Dosage: UNKOWN DOSE
  2. VALPROATE [Concomitant]
     Active Substance: VALPROIC ACID
     Indication: PARTIAL SEIZURES WITH SECONDARY GENERALISATION
     Dosage: 500 MILLIGRAM, 3X/DAY (TID)
  3. LEVETIRACETAM. [Suspect]
     Active Substance: LEVETIRACETAM
     Indication: PARTIAL SEIZURES WITH SECONDARY GENERALISATION
     Dosage: 1500 MILLIGRAM, 2X/DAY (BID)
  4. LACOSAMIDE. [Suspect]
     Active Substance: LACOSAMIDE
     Indication: PARTIAL SEIZURES WITH SECONDARY GENERALISATION
     Dosage: UNK

REACTIONS (4)
  - Behaviour disorder [Recovered/Resolved]
  - Seizure cluster [Recovered/Resolved]
  - Somnolence [Recovering/Resolving]
  - Weight increased [Unknown]
